FAERS Safety Report 5508560-4 (Version None)
Quarter: 2007Q4

REPORT INFORMATION
  Report Type: 
  Country: None (occurrence: None)
  Receive Date: 20071107
  Receipt Date: 20071029
  Transmission Date: 20080405
  Serious: Yes (Life-Threatening, Other)
  Sender: FDA-Public Use
  Company Number: US-JNJFOC-20071002019

PATIENT
  Sex: Female
  Weight: 42.64 kg

DRUGS (7)
  1. REMICADE [Suspect]
     Indication: RHEUMATOID ARTHRITIS
     Route: 042
  2. ALLOPURINOL [Concomitant]
  3. CELEBREX [Concomitant]
  4. LIPITOR [Concomitant]
  5. METHOTREXATE [Concomitant]
  6. FOSAMAX [Concomitant]
  7. NEXIUM [Concomitant]

REACTIONS (2)
  - FUNGUS CULTURE POSITIVE [None]
  - LUNG NEOPLASM MALIGNANT [None]
